FAERS Safety Report 12225457 (Version 1)
Quarter: 2016Q1

REPORT INFORMATION
  Report Type: Spontaneous
  Country: FR (occurrence: FR)
  Receive Date: 20160331
  Receipt Date: 20160331
  Transmission Date: 20160526
  Serious: Yes (Hospitalization)
  Sender: FDA-Public Use
  Company Number: FR-VIIV HEALTHCARE LIMITED-FR2016GSK043038

PATIENT
  Age: 4 Year
  Sex: Female
  Weight: 12 kg

DRUGS (3)
  1. RETROVIR [Suspect]
     Active Substance: ZIDOVUDINE
     Indication: AICARDI^S SYNDROME
     Dosage: 116 MG, BID
     Route: 048
     Dates: start: 20151023, end: 20160308
  2. ZIAGEN [Suspect]
     Active Substance: ABACAVIR SULFATE
     Indication: AICARDI^S SYNDROME
     Dosage: 100 MG, BID
     Route: 048
     Dates: start: 20151023, end: 20160308
  3. EPIVIR [Suspect]
     Active Substance: LAMIVUDINE
     Indication: AICARDI^S SYNDROME
     Dosage: 50 MG, BID
     Route: 048
     Dates: start: 20151023, end: 20160308

REACTIONS (4)
  - Gastrooesophageal reflux disease [Recovering/Resolving]
  - Appetite disorder [Recovering/Resolving]
  - Nausea [Recovering/Resolving]
  - Gastrointestinal disorder [Recovering/Resolving]

NARRATIVE: CASE EVENT DATE: 201512
